FAERS Safety Report 6974745-3 (Version None)
Quarter: 2010Q3

REPORT INFORMATION
  Report Type: 
  Country: None (occurrence: None)
  Receive Date: 20100909
  Receipt Date: 20081125
  Transmission Date: 20110219
  Serious: No
  Sender: FDA-Public Use
  Company Number: US-WYE-H06969908

PATIENT
  Sex: Female
  Weight: 79.45 kg

DRUGS (3)
  1. PROTONIX [Suspect]
     Indication: GASTROOESOPHAGEAL REFLUX DISEASE
     Route: 048
     Dates: start: 20080601
  2. PROZAC [Concomitant]
  3. SYNTHROID [Concomitant]

REACTIONS (1)
  - BLOOD GLUCOSE INCREASED [None]
